FAERS Safety Report 17982764 (Version 5)
Quarter: 2021Q1

REPORT INFORMATION
  Report Type: Other
  Country: JP (occurrence: JP)
  Receive Date: 20200706
  Receipt Date: 20210219
  Transmission Date: 20210419
  Serious: Yes (Life-Threatening, Hospitalization, Other)
  Sender: FDA-Public Use
  Company Number: JP-ROCHE-2635958

PATIENT
  Age: 71 Year
  Sex: Male
  Weight: 54 kg

DRUGS (4)
  1. AVASTIN [Suspect]
     Active Substance: BEVACIZUMAB
     Indication: COLON CANCER
     Dosage: DOSAGE IS UNCERTAIN.
     Route: 041
     Dates: start: 20160914, end: 20161121
  2. IRINOTECAN HYDROCHLORIDE HYDRATE [Concomitant]
     Active Substance: IRINOTECAN HYDROCHLORIDE
     Indication: COLON CANCER
     Route: 041
  3. AVASTIN [Suspect]
     Active Substance: BEVACIZUMAB
     Dosage: DOSAGE IS UNCERTAIN.
     Route: 041
     Dates: start: 20170213, end: 20190107
  4. LONSURF [Suspect]
     Active Substance: TIPIRACIL HYDROCHLORIDE\TRIFLURIDINE
     Indication: COLON CANCER
     Dosage: DOSAGE IS UNCERTAIN.
     Route: 048
     Dates: start: 20160914, end: 20161121

REACTIONS (10)
  - Disseminated intravascular coagulation [Unknown]
  - Off label use [Unknown]
  - Tumour necrosis [Recovering/Resolving]
  - Suture related complication [Recovering/Resolving]
  - Neutrophil count decreased [Recovered/Resolved]
  - Sepsis [Unknown]
  - Tumour marker increased [Unknown]
  - Intentional product use issue [Unknown]
  - Fistula [Recovering/Resolving]
  - Tumour rupture [Unknown]

NARRATIVE: CASE EVENT DATE: 20161205
